FAERS Safety Report 9101271 (Version 3)
Quarter: 2013Q1

REPORT INFORMATION
  Report Type: Spontaneous
  Country: US (occurrence: US)
  Receive Date: 20130219
  Receipt Date: 20130318
  Transmission Date: 20140127
  Serious: No
  Sender: FDA-Public Use
  Company Number: US-009507513-1301USA007681

PATIENT
  Age: 52 Year
  Sex: Female

DRUGS (7)
  1. CHLOR-TRIMETON [Suspect]
     Indication: MYCOTIC ALLERGY
     Dosage: 4 MG, QD
     Route: 048
     Dates: start: 2012, end: 20121008
  2. CHLOR-TRIMETON [Suspect]
     Indication: MEDICAL OBSERVATION
  3. TEKTURNA [Suspect]
     Indication: PRODUCT USED FOR UNKNOWN INDICATION
  4. TOPROL XL TABLETS [Suspect]
     Indication: PRODUCT USED FOR UNKNOWN INDICATION
  5. LIPITOR [Suspect]
     Indication: PRODUCT USED FOR UNKNOWN INDICATION
  6. LASIX (FUROSEMIDE SODIUM) [Suspect]
     Indication: PRODUCT USED FOR UNKNOWN INDICATION
  7. EVISTA [Suspect]
     Indication: PRODUCT USED FOR UNKNOWN INDICATION

REACTIONS (2)
  - Burning sensation [Unknown]
  - Inappropriate schedule of drug administration [Unknown]
